FAERS Safety Report 6309793-X (Version None)
Quarter: 2009Q3

REPORT INFORMATION
  Report Type: 
  Country: None (occurrence: None)
  Receive Date: 20090814
  Receipt Date: 20090720
  Transmission Date: 20100115
  Serious: No
  Sender: FDA-Public Use
  Company Number: BR-ELI_LILLY_AND_COMPANY-BR200907004312

PATIENT
  Sex: Male
  Weight: 70 kg

DRUGS (3)
  1. ZYPREXA [Suspect]
     Indication: OBSESSIVE-COMPULSIVE DISORDER
     Dosage: 10 MG, 2/D
     Route: 048
     Dates: start: 20090201
  2. SERTRALINA [Concomitant]
     Dosage: 150 MG, DAILY (1/D)
     Route: 065
     Dates: start: 20060101
  3. PAROXETINA [Concomitant]
     Dosage: 40 MG, DAILY (1/D)
     Route: 065
     Dates: start: 20090625

REACTIONS (2)
  - EPISTAXIS [None]
  - WEIGHT INCREASED [None]
